FAERS Safety Report 24726367 (Version 2)
Quarter: 2024Q4

REPORT INFORMATION
  Report Type: Spontaneous
  Country: US (occurrence: US)
  Receive Date: 20241212
  Receipt Date: 20241229
  Transmission Date: 20250115
  Serious: No
  Sender: BAUSCH AND LOMB
  Company Number: US-BAUSCHBL-2024BNL038308

PATIENT
  Age: 88 Year
  Sex: Female
  Weight: 66 kg

DRUGS (4)
  1. MIEBO [Suspect]
     Active Substance: PERFLUOROHEXYLOCTANE
     Indication: Dry eye
     Route: 047
  2. LATANOPROST [Suspect]
     Active Substance: LATANOPROST
     Indication: Ill-defined disorder
     Route: 047
  3. LOTEPREDNOL [Concomitant]
     Active Substance: LOTEPREDNOL
     Indication: Product used for unknown indication
     Route: 065
  4. SIMBRINZA [Concomitant]
     Active Substance: BRIMONIDINE TARTRATE\BRINZOLAMIDE
     Indication: Product used for unknown indication
     Route: 065

REACTIONS (8)
  - Eye irritation [Unknown]
  - Conjunctivitis [Unknown]
  - Visual impairment [Unknown]
  - Lacrimation increased [Unknown]
  - Therapeutic product effect incomplete [Unknown]
  - Product use complaint [Unknown]
  - Accidental exposure to product [Unknown]
  - Exposure via skin contact [Unknown]
